FAERS Safety Report 9688893 (Version 1)
Quarter: 2013Q4

REPORT INFORMATION
  Report Type: Spontaneous
  Country: BR (occurrence: BR)
  Receive Date: 20131114
  Receipt Date: 20131114
  Transmission Date: 20140711
  Serious: Yes (Other)
  Sender: FDA-Public Use
  Company Number: BR-ABBVIE-13P-020-1168339-00

PATIENT
  Age: 70 Year
  Sex: Female

DRUGS (1)
  1. HUMIRA [Suspect]
     Indication: RHEUMATOID ARTHRITIS
     Dates: start: 2008

REACTIONS (5)
  - Intervertebral disc disorder [Not Recovered/Not Resolved]
  - Amyloidosis [Unknown]
  - Lymphoma [Unknown]
  - Bone tuberculosis [Unknown]
  - Back pain [Unknown]
